FAERS Safety Report 18250929 (Version 2)
Quarter: 2020Q3

REPORT INFORMATION
  Report Type: Spontaneous
  Country: US (occurrence: US)
  Receive Date: 20200909
  Receipt Date: 20200923
  Transmission Date: 20201103
  Serious: Yes (Other)
  Sender: FDA-Public Use
  Company Number: US-PERRIGO-20US012781

PATIENT
  Age: 58 Year
  Sex: Male

DRUGS (7)
  1. PRILOSEC OTC [Suspect]
     Active Substance: OMEPRAZOLE MAGNESIUM
     Indication: PRODUCT USED FOR UNKNOWN INDICATION
     Dosage: UNKNOWN, UNKNOWN
     Route: 065
  2. DEXILANT [Suspect]
     Active Substance: DEXLANSOPRAZOLE
     Indication: GASTROOESOPHAGEAL REFLUX DISEASE
     Dosage: 30 MG, QD
     Route: 048
     Dates: start: 20130722, end: 20130822
  3. OMEPRAZOLE                         /00661202/ [Suspect]
     Active Substance: OMEPRAZOLE SODIUM
     Indication: GASTROOESOPHAGEAL REFLUX DISEASE
     Dosage: 20 MG
     Route: 048
     Dates: start: 20160627, end: 20161029
  4. PRILOSEC [Suspect]
     Active Substance: OMEPRAZOLE MAGNESIUM
     Indication: PRODUCT USED FOR UNKNOWN INDICATION
     Dosage: UNK
     Route: 065
  5. PREVACID 24 HR [Suspect]
     Active Substance: LANSOPRAZOLE
     Indication: PRODUCT USED FOR UNKNOWN INDICATION
     Dosage: UNKNOWN, UNKNOWN
     Route: 048
  6. PREVACID [Suspect]
     Active Substance: LANSOPRAZOLE
     Indication: PRODUCT USED FOR UNKNOWN INDICATION
     Dosage: UNKNOWN, UNKNOWN
     Route: 065
  7. DEXLANSOPRAZOLE [Suspect]
     Active Substance: DEXLANSOPRAZOLE
     Indication: PRODUCT USED FOR UNKNOWN INDICATION
     Dosage: UNKNOWN, UNKNOWN
     Route: 065

REACTIONS (19)
  - Chronic kidney disease [Unknown]
  - Focal segmental glomerulosclerosis [Unknown]
  - Renal cyst [Unknown]
  - Renal neoplasm [Unknown]
  - End stage renal disease [Unknown]
  - Renal impairment [Unknown]
  - Pollakiuria [Unknown]
  - Dialysis [Unknown]
  - Intercapillary glomerulosclerosis [Unknown]
  - Renal injury [Unknown]
  - Hypertensive nephropathy [Unknown]
  - Glomerulosclerosis [Unknown]
  - Glomerular vascular disorder [Unknown]
  - Nephrotic syndrome [Unknown]
  - Renal tubular necrosis [Unknown]
  - Renal mass [Unknown]
  - Diabetic nephropathy [Unknown]
  - Nocturia [Unknown]
  - Proteinuria [Unknown]

NARRATIVE: CASE EVENT DATE: 20110308
